FAERS Safety Report 10032937 (Version 1)
Quarter: 2014Q1

REPORT INFORMATION
  Report Type: Spontaneous
  Country: CA (occurrence: CA)
  Receive Date: 20140324
  Receipt Date: 20140324
  Transmission Date: 20141002
  Serious: Yes (Death, Hospitalization, Other)
  Sender: FDA-Public Use
  Company Number: CA-ELI_LILLY_AND_COMPANY-CA201403007704

PATIENT
  Age: 93 Year
  Sex: Female

DRUGS (3)
  1. ZYPREXA ZYDIS [Suspect]
     Indication: DIET REFUSAL
     Dosage: 2.5 MG, EACH EVENING
     Dates: start: 20070425
  2. ZYPREXA ZYDIS [Suspect]
     Indication: WEIGHT DECREASED
     Dosage: 5 MG, UNK
  3. ZYPREXA ZYDIS [Suspect]
     Indication: AGITATION
     Dosage: 7.5 MG, UNK
     Route: 065
     Dates: start: 20070706

REACTIONS (8)
  - Death [Fatal]
  - Unresponsive to stimuli [Unknown]
  - Convulsion [Unknown]
  - Urinary tract infection [Unknown]
  - Coma [Not Recovered/Not Resolved]
  - Overdose [Unknown]
  - Hypotension [Unknown]
  - Off label use [Not Recovered/Not Resolved]
